FAERS Safety Report 7202483-0 (Version None)
Quarter: 2010Q4

REPORT INFORMATION
  Report Type: 
  Country: None (occurrence: None)
  Receive Date: 20101229
  Receipt Date: 20101220
  Transmission Date: 20110411
  Serious: Yes (Other)
  Sender: FDA-Public Use
  Company Number: B0691186A

PATIENT
  Sex: Male

DRUGS (3)
  1. THIOGUANINE [Suspect]
     Indication: ACUTE MYELOID LEUKAEMIA
     Dosage: 95MG PER DAY
     Route: 048
     Dates: start: 20101118, end: 20101122
  2. DAUNOBLASTINA [Suspect]
     Indication: ACUTE MYELOID LEUKAEMIA
     Dosage: 40MG PER DAY
     Route: 042
     Dates: start: 20101118, end: 20101118
  3. CYTARABINE [Suspect]
     Indication: ACUTE MYELOID LEUKAEMIA
     Dosage: 190MG PER DAY
     Route: 042
     Dates: start: 20101118, end: 20101122

REACTIONS (2)
  - ANAEMIA [None]
  - THROMBOCYTOPENIA [None]
